FAERS Safety Report 4491931-5 (Version None)
Quarter: 2004Q4

REPORT INFORMATION
  Report Type: 
  Country: None (occurrence: None)
  Receive Date: 20041029
  Receipt Date: 20041029
  Transmission Date: 20050328
  Serious: Yes (Disabling)
  Sender: FDA-Public Use
  Company Number: None

PATIENT
  Sex: Female
  Weight: 48.9885 kg

DRUGS (1)
  1. LEVOFLOXACIN [Suspect]
     Indication: KIDNEY INFECTION
     Dosage: 1 A DAY   FOR 6 DAYS   ORAL
     Route: 048
     Dates: start: 20040717, end: 20040722

REACTIONS (4)
  - ARTHRALGIA [None]
  - FATIGUE [None]
  - MUSCULOSKELETAL STIFFNESS [None]
  - PAIN IN EXTREMITY [None]
